FAERS Safety Report 8130170-3 (Version None)
Quarter: 2012Q1

REPORT INFORMATION
  Report Type: 
  Country: None (occurrence: None)
  Receive Date: 20120210
  Receipt Date: 20120207
  Transmission Date: 20120608
  Serious: Yes (Death, Other)
  Sender: FDA-Public Use
  Company Number: US-ELI_LILLY_AND_COMPANY-US201108003181

PATIENT
  Sex: Male

DRUGS (1)
  1. BYETTA [Suspect]

REACTIONS (2)
  - DEATH [None]
  - PANCREATITIS [None]
